FAERS Safety Report 4865079-1 (Version None)
Quarter: 2005Q4

REPORT INFORMATION
  Report Type: 
  Country: None (occurrence: None)
  Receive Date: 20051221
  Receipt Date: 20051221
  Transmission Date: 20060501
  Serious: Yes (Death)
  Sender: FDA-Public Use
  Company Number: None

PATIENT
  Age: 64 Year
  Sex: Female

DRUGS (9)
  1. WARFARIN [Suspect]
     Indication: ANTICOAGULANT THERAPY
     Dosage: 57 MG PO DAILY
     Route: 048
     Dates: start: 20051029, end: 20051030
  2. LOVENOX [Suspect]
     Indication: ANTICOAGULANT THERAPY
     Dosage: 40 MG SQ BID
     Route: 058
     Dates: start: 20051029, end: 20051101
  3. ASPIRIN [Concomitant]
  4. PLAVIX [Concomitant]
  5. OXYCONTIN [Concomitant]
  6. PERCOCE [Concomitant]
  7. BENADRYL [Concomitant]
  8. RECTORIL [Concomitant]
  9. PERCOCET [Concomitant]

REACTIONS (3)
  - DEEP VEIN THROMBOSIS [None]
  - OSTEOMYELITIS [None]
  - SKIN LACERATION [None]
